FAERS Safety Report 8886957 (Version 1)
Quarter: 2012Q4

REPORT INFORMATION
  Report Type: 
  Country: GB (occurrence: GB)
  Receive Date: 20121105
  Receipt Date: 20121105
  Transmission Date: 20130627
  Serious: Yes (Hospitalization, Other)
  Sender: FDA-Public Use
  Company Number: PHFR2012GB005670

PATIENT
  Age: 74 Year
  Sex: Male
  Weight: 75 kg

DRUGS (6)
  1. TASIGNA [Suspect]
     Indication: CHRONIC MYELOID LEUKAEMIA
     Dosage: 400 mg, UNK
     Route: 048
     Dates: start: 20120725, end: 20120820
  2. RAMIPRIL [Concomitant]
  3. ALLOPURINOL [Concomitant]
     Indication: GOUT
  4. ATENOLOL [Concomitant]
  5. ASPIRIN [Concomitant]
  6. NICORANDIL [Concomitant]

REACTIONS (5)
  - Acute myocardial infarction [Recovered/Resolved]
  - Angina pectoris [Recovered/Resolved]
  - Atrial fibrillation [Recovered/Resolved]
  - Hepatitis [Unknown]
  - Liver function test abnormal [Unknown]
